FAERS Safety Report 9758442 (Version 1)
Quarter: 2013Q4

REPORT INFORMATION
  Report Type: Spontaneous
  Country: GB (occurrence: GB)
  Receive Date: 20131216
  Receipt Date: 20131216
  Transmission Date: 20140711
  Serious: Yes (Other)
  Sender: FDA-Public Use
  Company Number: GB-ASTRAZENECA-2013SE89383

PATIENT
  Sex: 0

DRUGS (1)
  1. BUPIVACAINE [Suspect]
     Route: 064

REACTIONS (2)
  - Methaemoglobinaemia [Unknown]
  - Cyanosis [Unknown]
